FAERS Safety Report 13672702 (Version 3)
Quarter: 2017Q4

REPORT INFORMATION
  Report Type: Report from Study
  Country: None (occurrence: US)
  Receive Date: 20170621
  Receipt Date: 20171205
  Transmission Date: 20180320
  Serious: Yes (Other)
  Sender: FDA-Public Use
  Company Number: US-ABBVIE-17K-163-2011788-00

PATIENT
  Age: 53 Year
  Sex: Female
  Weight: 112.14 kg

DRUGS (5)
  1. HUMIRA [Suspect]
     Active Substance: ADALIMUMAB
     Indication: PSORIATIC ARTHROPATHY
     Route: 058
     Dates: end: 20170613
  2. HUMIRA [Suspect]
     Active Substance: ADALIMUMAB
     Route: 058
     Dates: start: 20170715
  3. GALANTAMINE. [Concomitant]
     Active Substance: GALANTAMINE
     Indication: PRODUCT USED FOR UNKNOWN INDICATION
  4. METHOTREXATE. [Suspect]
     Active Substance: METHOTREXATE
     Indication: PRODUCT USED FOR UNKNOWN INDICATION
     Route: 048
     Dates: start: 20140901, end: 20170616
  5. PREDNISONE. [Suspect]
     Active Substance: PREDNISONE
     Indication: PRODUCT USED FOR UNKNOWN INDICATION
     Route: 065

REACTIONS (32)
  - Spinal laminectomy [Unknown]
  - Blood urea increased [Unknown]
  - Memory impairment [Recovered/Resolved]
  - Delirium [Recovered/Resolved]
  - Cognitive disorder [Unknown]
  - Blood triglycerides increased [Unknown]
  - Constipation [Unknown]
  - Non-alcoholic fatty liver [Unknown]
  - Confusional state [Unknown]
  - Stress urinary incontinence [Unknown]
  - Diverticulitis [Unknown]
  - Essential hypertension [Unknown]
  - Migraine with aura [Unknown]
  - Muscle spasms [Unknown]
  - Depression [Recovering/Resolving]
  - Blood cholesterol increased [Unknown]
  - Musculoskeletal pain [Unknown]
  - Gastrooesophageal reflux disease [Unknown]
  - Suicidal ideation [Recovered/Resolved]
  - Demyelination [Unknown]
  - Depression [Recovered/Resolved]
  - Psoriasis [Unknown]
  - Insomnia [Unknown]
  - Anxiety [Unknown]
  - Muscle spasms [Unknown]
  - Rhinitis allergic [Unknown]
  - Suicidal ideation [Recovered/Resolved]
  - Low density lipoprotein increased [Unknown]
  - Personality change [Unknown]
  - Pustular psoriasis [Unknown]
  - Central nervous system stimulation [Unknown]
  - Anxiety [Recovered/Resolved]

NARRATIVE: CASE EVENT DATE: 20150914
